FAERS Safety Report 21994302 (Version 3)
Quarter: 2023Q1

REPORT INFORMATION
  Report Type: Spontaneous
  Country: US (occurrence: US)
  Receive Date: 20230215
  Receipt Date: 20230227
  Transmission Date: 20230417
  Serious: Yes (Other)
  Sender: FDA-Public Use
  Company Number: US-SANOFI-01487355

PATIENT

DRUGS (1)
  1. DUPIXENT [Suspect]
     Active Substance: DUPILUMAB
     Indication: Nasal polyps
     Dosage: UNK
     Route: 064
     Dates: start: 2022, end: 202301

REACTIONS (5)
  - Hydrops foetalis [Unknown]
  - Talipes [Unknown]
  - Respiratory tract malformation [Unknown]
  - Heart disease congenital [Unknown]
  - Foetal exposure timing unspecified [Unknown]
